FAERS Safety Report 9383019 (Version 3)
Quarter: 2013Q4

REPORT INFORMATION
  Report Type: Spontaneous
  Country: US (occurrence: US)
  Receive Date: 20130704
  Receipt Date: 20131011
  Transmission Date: 20140711
  Serious: No
  Sender: FDA-Public Use
  Company Number: US-009507513-1306USA011643

PATIENT
  Age: 56 Year
  Sex: Male

DRUGS (4)
  1. VICTRELIS [Suspect]
     Indication: HEPATITIS C
     Dosage: 800 MG, Q8H
     Route: 048
     Dates: start: 20130531
  2. PEGASYS [Suspect]
  3. RIBASPHERE [Suspect]
  4. CRESTOR [Concomitant]

REACTIONS (4)
  - Epistaxis [Recovered/Resolved]
  - Epistaxis [Unknown]
  - Pruritus [Not Recovered/Not Resolved]
  - Pruritus [Not Recovered/Not Resolved]
